FAERS Safety Report 7586415-1 (Version None)
Quarter: 2011Q3

REPORT INFORMATION
  Report Type: 
  Country: None (occurrence: None)
  Receive Date: 20110701
  Receipt Date: 20110620
  Transmission Date: 20111222
  Serious: Yes (Hospitalization)
  Sender: FDA-Public Use
  Company Number: B0706762A

PATIENT
  Sex: Male

DRUGS (8)
  1. PREDNISOLONE [Concomitant]
     Indication: IDIOPATHIC THROMBOCYTOPENIC PURPURA
     Dosage: 20MG PER DAY
     Route: 048
     Dates: start: 20110105
  2. FERROUS CITRATE [Concomitant]
     Indication: IRON DEFICIENCY ANAEMIA
     Dosage: 100MG PER DAY
     Route: 048
     Dates: start: 20101126, end: 20110214
  3. OMEPRAZOLE [Concomitant]
     Indication: GASTROOESOPHAGEAL REFLUX DISEASE
     Dosage: 20MG PER DAY
     Route: 048
     Dates: start: 20110224
  4. BONALON [Concomitant]
     Indication: OSTEOPOROSIS
     Dosage: 35MG PER DAY
     Route: 048
     Dates: start: 20110225
  5. DANAZOL [Concomitant]
     Indication: IDIOPATHIC THROMBOCYTOPENIC PURPURA
     Dosage: 200MG PER DAY
     Route: 048
     Dates: start: 20110222
  6. PROMACTA [Suspect]
     Indication: IDIOPATHIC THROMBOCYTOPENIC PURPURA
     Dosage: 37.5MG PER DAY
     Route: 048
     Dates: start: 20110210, end: 20110423
  7. ASACOL [Concomitant]
     Indication: COLITIS ULCERATIVE
     Dosage: 3600MG PER DAY
     Route: 048
     Dates: start: 20101126
  8. LOXONIN [Concomitant]
     Indication: SPINAL COMPRESSION FRACTURE
     Dosage: 180MG PER DAY
     Route: 048
     Dates: start: 20110301

REACTIONS (9)
  - FATIGUE [None]
  - PYREXIA [None]
  - WHITE BLOOD CELL COUNT DECREASED [None]
  - GRANULOCYTOPENIA [None]
  - PLATELET COUNT DECREASED [None]
  - HAEMORRHAGE SUBCUTANEOUS [None]
  - THROMBOCYTOPENIA [None]
  - APLASTIC ANAEMIA [None]
  - ANAEMIA [None]
